FAERS Safety Report 20048171 (Version 1)
Quarter: 2021Q4

REPORT INFORMATION
  Report Type: Spontaneous
  Country: US (occurrence: US)
  Receive Date: 20211109
  Receipt Date: 20211109
  Transmission Date: 20220303
  Serious: No
  Sender: FDA-Public Use
  Company Number: US-GW PHARMA-202110USGW05340

PATIENT

DRUGS (2)
  1. EPIDIOLEX [Suspect]
     Active Substance: CANNABIDIOL
     Indication: Lennox-Gastaut syndrome
     Dosage: 12.08 MG/KG/DAY, 400 MILLIGRAM, BID
     Route: 048
     Dates: start: 20210616, end: 202110
  2. EPIDIOLEX [Suspect]
     Active Substance: CANNABIDIOL
     Dosage: 15.10 MG/KG/DAY, 500 MILLIGRAM, BID
     Route: 048
     Dates: start: 202110

REACTIONS (3)
  - Seizure [Unknown]
  - Clavicle fracture [Unknown]
  - Fall [Unknown]

NARRATIVE: CASE EVENT DATE: 20210101
